FAERS Safety Report 4685172-6 (Version None)
Quarter: 2005Q2

REPORT INFORMATION
  Report Type: 
  Country: None (occurrence: None)
  Receive Date: 20050608
  Receipt Date: 20050603
  Transmission Date: 20051028
  Serious: Yes (Hospitalization)
  Sender: FDA-Public Use
  Company Number: 200515160GDDC

PATIENT
  Age: 50 Year
  Sex: Female

DRUGS (9)
  1. MINIRIN [Suspect]
     Indication: ENURESIS
     Route: 045
     Dates: start: 20050315, end: 20050326
  2. NITROFURANTOIN [Concomitant]
     Dosage: DOSE: UNK
     Route: 048
  3. NORDAZEPAM [Concomitant]
     Route: 048
  4. PROGESTERONE [Concomitant]
     Dosage: DOSE: UNK
     Route: 048
  5. MIANSERIN HYDROCHLORIDE [Concomitant]
     Route: 048
  6. ESTRADIOL [Concomitant]
     Dosage: DOSE: UNK
     Route: 003
  7. METOPIMAZINE [Concomitant]
     Route: 048
     Dates: start: 20050323, end: 20050323
  8. PANTOPRAZOLE [Concomitant]
     Route: 048
     Dates: start: 20050323, end: 20050323
  9. GINKOR FORT [Concomitant]
     Dosage: DOSE: UNK
     Route: 048
     Dates: start: 20050101

REACTIONS (9)
  - AGITATION [None]
  - FALL [None]
  - HYPOCHLORAEMIA [None]
  - HYPONATRAEMIA [None]
  - INTRACRANIAL INJURY [None]
  - MALAISE [None]
  - OVERDOSE [None]
  - WATER INTOXICATION [None]
  - WOUND [None]
